FAERS Safety Report 9452364 (Version 1)
Quarter: 2013Q3

REPORT INFORMATION
  Report Type: Spontaneous
  Country: FR (occurrence: FR)
  Receive Date: 20130812
  Receipt Date: 20130812
  Transmission Date: 20140515
  Serious: Yes (Hospitalization, Congenital Anomaly, Other)
  Sender: FDA-Public Use
  Company Number: FR-ELI_LILLY_AND_COMPANY-FR201308000834

PATIENT
  Age: 0 Day
  Sex: 0

DRUGS (3)
  1. PROZAC [Suspect]
     Indication: DEPRESSION
     Dosage: 20 MG, BID
     Route: 064
  2. XANAX [Suspect]
     Indication: DEPRESSION
     Dosage: 0.5 MG, QID
     Route: 064
  3. NORMISON [Suspect]
     Indication: DEPRESSION
     Dosage: 20 MG, EACH EVENING
     Route: 064

REACTIONS (8)
  - Congenital megacolon [Recovered/Resolved with Sequelae]
  - Foetal arrhythmia [Unknown]
  - Sleep disorder [Recovering/Resolving]
  - Serotonin syndrome [Recovering/Resolving]
  - Drug withdrawal syndrome neonatal [Recovering/Resolving]
  - Tremor [Recovering/Resolving]
  - Agitation [Recovering/Resolving]
  - Exposure during pregnancy [Recovered/Resolved]
